FAERS Safety Report 26004512 (Version 1)
Quarter: 2025Q4

REPORT INFORMATION
  Report Type: Report from Study
  Country: EU (occurrence: EU)
  Receive Date: 20251106
  Receipt Date: 20251106
  Transmission Date: 20260118
  Serious: Yes (Hospitalization, Disabling)
  Sender: ABBVIE
  Company Number: EU-ABBVIE-6529570

PATIENT
  Age: 43 Year
  Sex: Female
  Weight: 105 kg

DRUGS (4)
  1. RISANKIZUMAB [Suspect]
     Active Substance: RISANKIZUMAB
     Indication: Crohn^s disease
     Route: 058
     Dates: start: 20241230, end: 20250207
  2. RISANKIZUMAB [Suspect]
     Active Substance: RISANKIZUMAB
     Route: 058
     Dates: start: 20250505
  3. RISANKIZUMAB [Suspect]
     Active Substance: RISANKIZUMAB
     Indication: Crohn^s disease
     Route: 042
     Dates: start: 20241008, end: 20241203
  4. RISANKIZUMAB [Suspect]
     Active Substance: RISANKIZUMAB
     Indication: Crohn^s disease
     Route: 042
     Dates: start: 20250212, end: 20250408

REACTIONS (1)
  - Female genital tract fistula [Recovered/Resolved with Sequelae]

NARRATIVE: CASE EVENT DATE: 20250702
